FAERS Safety Report 4481101-9 (Version None)
Quarter: 2004Q4

REPORT INFORMATION
  Report Type: 
  Country: None (occurrence: None)
  Receive Date: 20041019
  Receipt Date: 20041019
  Transmission Date: 20050328
  Serious: Yes (Life-Threatening)
  Sender: FDA-Public Use
  Company Number: None

PATIENT
  Age: 60 Year
  Sex: Male
  Weight: 94.7 kg

DRUGS (3)
  1. TAXOTERE [Suspect]
     Dosage: 30 MG/M2 IV
     Route: 042
     Dates: start: 20040723, end: 20041015
  2. CISPLATIN [Suspect]
     Dosage: 25 MG/M2/ IV
     Route: 042
     Dates: start: 20040723, end: 20041015
  3. CPT-11  (DAY 1, 8 OF 21 DAY CYCLE) [Suspect]
     Dosage: 28.125 MG/M2 IV
     Route: 042
     Dates: start: 20040723, end: 20041015

REACTIONS (1)
  - PULMONARY EMBOLISM [None]
